FAERS Safety Report 26168945 (Version 1)
Quarter: 2025Q4

REPORT INFORMATION
  Report Type: Other
  Country: GB (occurrence: GB)
  Receive Date: 20251217
  Receipt Date: 20251217
  Transmission Date: 20260117
  Serious: Yes (Other)
  Sender: STRIDES
  Company Number: GB-PHARMVIT-4556-3352-ER25-RN1708

PATIENT
  Age: 11 Year
  Sex: Male

DRUGS (1)
  1. PREDNISOLONE [Suspect]
     Active Substance: PREDNISOLONE
     Indication: Product used for unknown indication
     Dosage: 30 MILLIGRAM
     Route: 065

REACTIONS (1)
  - Adverse drug reaction [Unknown]
